FAERS Safety Report 8176035-2 (Version None)
Quarter: 2012Q1

REPORT INFORMATION
  Report Type: 
  Country: None (occurrence: None)
  Receive Date: 20120301
  Receipt Date: 20120228
  Transmission Date: 20120608
  Serious: No
  Sender: FDA-Public Use
  Company Number: US-PFIZER INC-2012053642

PATIENT
  Sex: Female
  Weight: 81.6 kg

DRUGS (2)
  1. CLONAZEPAM [Concomitant]
     Indication: CARDIAC DISORDER
     Dosage: 1 MG, DAILY
  2. PRISTIQ [Suspect]
     Indication: DEPRESSION
     Dosage: 50 MG, DAILY
     Route: 048
     Dates: start: 20090301, end: 20120225

REACTIONS (1)
  - PARAESTHESIA [None]
